FAERS Safety Report 18966378 (Version 1)
Quarter: 2021Q1

REPORT INFORMATION
  Report Type: Spontaneous
  Country: US (occurrence: US)
  Receive Date: 20210304
  Receipt Date: 20210304
  Transmission Date: 20210420
  Serious: No
  Sender: FDA-Public Use
  Company Number: US-LUNDBECK-DKLU3029237

PATIENT
  Age: 38 Year
  Sex: Female

DRUGS (1)
  1. NORTHERA [Suspect]
     Active Substance: DROXIDOPA
     Indication: HYPOTENSION
     Dosage: 200MG AND 300MG CAPSULES TID
     Route: 048
     Dates: start: 20200806

REACTIONS (2)
  - Mobility decreased [Not Recovered/Not Resolved]
  - Intentional underdose [Unknown]
